FAERS Safety Report 9538587 (Version 1)
Quarter: 2013Q2

REPORT INFORMATION
  Report Type: Spontaneous
  Country: US (occurrence: None)
  Receive Date: 20130517
  Receipt Date: 20130517
  Transmission Date: 20140414
  Serious: No
  Sender: FDA-Public Use
  Company Number: 1000042099

PATIENT
  Age: 62 Year
  Sex: Male

DRUGS (3)
  1. VIIBRYD ( VILAZODONE HYDROCHLORIDE) ( 10 MILLIGRAM, TABLETS) [Suspect]
     Indication: DEPRESSION
     Dosage: 10 MG ( 10 MG, 1 IN 1 D), ORAL
     Route: 048
     Dates: start: 2012, end: 2012
  2. METFORMIN ( METFORMIN) (METFORMIN) [Concomitant]
  3. AMLODIPINE ( AMLODIPINE) (AMLODIPINE) [Concomitant]

REACTIONS (1)
  - Sexual dysfunction [None]
